FAERS Safety Report 8784997 (Version 6)
Quarter: 2013Q4

REPORT INFORMATION
  Report Type: Report from Study
  Country: JP (occurrence: JP)
  Receive Date: 20120914
  Receipt Date: 20131107
  Transmission Date: 20140711
  Serious: Yes (Hospitalization, Other)
  Sender: FDA-Public Use
  Company Number: JP-VERTEX PHARMACEUTICAL INC.-2012-020940

PATIENT
  Age: 70 Year
  Sex: Female

DRUGS (14)
  1. VX-950 (TELAPREVIR) [Suspect]
     Indication: CHRONIC HEPATITIS C
     Dosage: 2250 MG, QD
     Route: 048
     Dates: start: 20120824, end: 20120827
  2. PEGINTRON [Suspect]
     Indication: CHRONIC HEPATITIS C
     Dosage: 1.5 ?G/KG, QW
     Route: 058
     Dates: start: 20120824, end: 20120824
  3. PEGINTRON [Suspect]
     Dosage: 1.5 ?G/KG, QW
     Route: 058
     Dates: start: 20120905, end: 20121009
  4. PEGINTRON [Suspect]
     Dosage: 0.75 ?G/KG, QW
     Route: 058
     Dates: start: 20121010, end: 20121128
  5. REBETOL [Suspect]
     Indication: CHRONIC HEPATITIS C
     Dosage: 600 MG, QD
     Route: 048
     Dates: start: 20120824, end: 20120827
  6. REBETOL [Suspect]
     Dosage: 600 MG, QD
     Route: 048
     Dates: start: 20120902, end: 20120910
  7. REBETOL [Suspect]
     Dosage: 600 MG, QD
     Route: 048
     Dates: start: 20120919, end: 20121128
  8. EPL [Concomitant]
     Dosage: 750 MG, QD
     Route: 048
  9. TAKEPRON [Concomitant]
     Dosage: 30 MG, QD
     Route: 048
  10. METHYCOBAL [Concomitant]
     Dosage: 1500 ?G, QD
     Route: 048
  11. HALCION [Concomitant]
     Dosage: 0.25 MG, QD
     Route: 048
  12. GRANDAXIN [Concomitant]
     Dosage: 50 MG, QD
     Route: 048
  13. DIOVAN [Concomitant]
     Dosage: 80 MG, QD
     Route: 048
  14. URSO [Concomitant]
     Dosage: 600 MG, QD
     Route: 048

REACTIONS (2)
  - Renal impairment [Recovered/Resolved]
  - White blood cell count decreased [Not Recovered/Not Resolved]
